APPROVED DRUG PRODUCT: NAFTIFINE HYDROCHLORIDE
Active Ingredient: NAFTIFINE HYDROCHLORIDE
Strength: 2%
Dosage Form/Route: CREAM;TOPICAL
Application: A206960 | Product #001 | TE Code: AB
Applicant: AMNEAL PHARMACEUTICALS LLC
Approved: Apr 10, 2017 | RLD: No | RS: No | Type: RX